FAERS Safety Report 5068227-6 (Version None)
Quarter: 2006Q3

REPORT INFORMATION
  Report Type: 
  Country: None (occurrence: None)
  Receive Date: 20060802
  Receipt Date: 20050609
  Transmission Date: 20061208
  Serious: No
  Sender: FDA-Public Use
  Company Number: US-BRISTOL-MYERS SQUIBB COMPANY-12999033

PATIENT
  Sex: Female

DRUGS (4)
  1. COUMADIN [Suspect]
     Indication: PROPHYLAXIS
     Dates: start: 20050401
  2. TYLENOL [Suspect]
     Indication: PAIN
     Route: 048
     Dates: start: 20050401, end: 20050429
  3. ACETAMINOPHEN [Concomitant]
     Indication: PROCEDURAL PAIN
     Dates: start: 20050401, end: 20050401
  4. OXYCONTIN [Concomitant]
     Indication: PROCEDURAL PAIN
     Dates: start: 20050401, end: 20050401

REACTIONS (1)
  - CARDIAC FLUTTER [None]
